FAERS Safety Report 19597757 (Version 1)
Quarter: 2021Q3

REPORT INFORMATION
  Report Type: Report from Study
  Country: TW (occurrence: TW)
  Receive Date: 20210723
  Receipt Date: 20210723
  Transmission Date: 20211014
  Serious: Yes (Hospitalization)
  Sender: FDA-Public Use
  Company Number: TW-ASTRAZENECA-2021A629913

PATIENT
  Age: 75 Year
  Sex: Female

DRUGS (1)
  1. IMFINZI [Suspect]
     Active Substance: DURVALUMAB
     Indication: LUNG NEOPLASM MALIGNANT
     Route: 042
     Dates: start: 20210513

REACTIONS (3)
  - Platelet count decreased [Unknown]
  - Haemoptysis [Unknown]
  - Pulmonary haemorrhage [Unknown]

NARRATIVE: CASE EVENT DATE: 20210705
